FAERS Safety Report 11327846 (Version 1)
Quarter: 2015Q3

REPORT INFORMATION
  Report Type: Spontaneous
  Country: FR (occurrence: FR)
  Receive Date: 20150731
  Receipt Date: 20150731
  Transmission Date: 20151125
  Serious: Yes (Death)
  Sender: FDA-Public Use
  Company Number: FR-BAYER-2015-384086

PATIENT
  Age: 61 Year
  Sex: Female

DRUGS (6)
  1. NEXAVAR [Suspect]
     Active Substance: SORAFENIB
     Indication: HEPATOCELLULAR CARCINOMA
     Dosage: 400 MG, BID
     Route: 048
     Dates: start: 20150422, end: 20150708
  2. CANCIDAS [Concomitant]
     Active Substance: CASPOFUNGIN ACETATE
  3. TRIFLUCAN [Concomitant]
     Active Substance: FLUCONAZOLE
  4. TIENAM [Concomitant]
     Active Substance: CILASTATIN SODIUM\IMIPENEM
  5. TAZOCILLINE [Concomitant]
     Active Substance: PIPERACILLIN SODIUM\TAZOBACTAM SODIUM
  6. GENTAMICINE [Concomitant]
     Active Substance: GENTAMICIN

REACTIONS (3)
  - Peritonitis [Fatal]
  - Septic shock [Fatal]
  - Gastric ulcer perforation [Fatal]

NARRATIVE: CASE EVENT DATE: 20150707
